FAERS Safety Report 4971145-2 (Version None)
Quarter: 2006Q1

REPORT INFORMATION
  Report Type: 
  Country: None (occurrence: None)
  Receive Date: 20060323
  Receipt Date: 20041210
  Transmission Date: 20060701
  Serious: Yes (Hospitalization)
  Sender: FDA-Public Use
  Company Number: HQWYE943913DEC04

PATIENT
  Age: 82 Year
  Sex: Female
  Weight: 52.21 kg

DRUGS (9)
  1. EFFEXOR [Suspect]
     Indication: DEPRESSION
     Dosage: SEE IMAGE
     Route: 048
     Dates: start: 20030101, end: 20040101
  2. EFFEXOR [Suspect]
     Indication: DEPRESSION
     Dosage: SEE IMAGE
     Route: 048
     Dates: start: 20040101, end: 20040101
  3. EFFEXOR [Suspect]
     Indication: DEPRESSION
     Dosage: SEE IMAGE
     Route: 048
     Dates: start: 20040101, end: 20041216
  4. EFFEXOR XR [Suspect]
     Indication: DEPRESSION
     Dosage: 225 MG 1X PER 1 DAY, ORAL
     Route: 048
     Dates: start: 20041207
  5. DILTIAZEM [Concomitant]
  6. TOPROL-XL [Concomitant]
  7. TRIAMTERE AND HYDROCHLOROTHIAZID ^HARRIS^ (HYDROCHLOROTHIAZIDE/TRIAMTE [Concomitant]
  8. INSULIN [Concomitant]
  9. ASPIRIN [Concomitant]

REACTIONS (8)
  - ATRIAL FIBRILLATION [None]
  - BLOOD POTASSIUM DECREASED [None]
  - CRYING [None]
  - DRUG WITHDRAWAL SYNDROME [None]
  - DYSPHONIA [None]
  - HEART RATE INCREASED [None]
  - MALAISE [None]
  - TEARFULNESS [None]
